FAERS Safety Report 7796416-6 (Version None)
Quarter: 2011Q4

REPORT INFORMATION
  Report Type: 
  Country: None (occurrence: None)
  Receive Date: 20111005
  Receipt Date: 20110927
  Transmission Date: 20120403
  Serious: No
  Sender: FDA-Public Use
  Company Number: US-BIOGENIDEC-2011BI037089

PATIENT
  Age: 45 Year
  Sex: Female

DRUGS (2)
  1. TOPAMAX [Concomitant]
     Indication: MIGRAINE
     Dates: start: 20100901
  2. TYSABRI [Suspect]
     Indication: MULTIPLE SCLEROSIS
     Route: 042
     Dates: start: 20110501

REACTIONS (9)
  - INTERVERTEBRAL DISC PROTRUSION [None]
  - INTERVERTEBRAL DISC COMPRESSION [None]
  - NASOPHARYNGITIS [None]
  - DYSKINESIA [None]
  - HEADACHE [None]
  - INFLUENZA LIKE ILLNESS [None]
  - BRONCHITIS [None]
  - CHEST DISCOMFORT [None]
  - DYSPNOEA [None]
